FAERS Safety Report 4525206-2 (Version None)
Quarter: 2004Q4

REPORT INFORMATION
  Report Type: 
  Country: None (occurrence: None)
  Receive Date: 20041213
  Receipt Date: 20041118
  Transmission Date: 20050328
  Serious: Yes (Life-Threatening, Hospitalization, Disabling)
  Sender: FDA-Public Use
  Company Number: US-MERCK-0411USA03209

PATIENT
  Sex: Female

DRUGS (11)
  1. VIOXX [Suspect]
     Indication: ARTHRALGIA
     Route: 048
     Dates: start: 20040301, end: 20040101
  2. COUMADIN [Concomitant]
     Route: 065
  3. COUMADIN [Concomitant]
     Route: 065
  4. PREMPRO [Concomitant]
     Route: 065
  5. KLONOPIN [Concomitant]
     Route: 065
  6. METHADONE HYDROCHLORIDE [Concomitant]
     Route: 065
  7. [THERAPY UNSPECIFIED] [Concomitant]
     Route: 065
  8. PERCOCET [Concomitant]
     Route: 065
  9. PREVACID [Concomitant]
     Route: 065
  10. PREVACID [Concomitant]
     Route: 065
     Dates: start: 20030301
  11. PREVACID [Concomitant]
     Route: 065
     Dates: start: 20040701

REACTIONS (4)
  - DIZZINESS [None]
  - OEDEMA PERIPHERAL [None]
  - PAIN IN EXTREMITY [None]
  - THROMBOSIS [None]
